FAERS Safety Report 23677754 (Version 1)
Quarter: 2024Q1

REPORT INFORMATION
  Report Type: Spontaneous
  Country: US (occurrence: US)
  Receive Date: 20240327
  Receipt Date: 20240327
  Transmission Date: 20240409
  Serious: Yes (Other)
  Sender: FDA-Public Use
  Company Number: US-PFIZER INC-PV202400040459

PATIENT
  Age: 50 Year
  Sex: Female

DRUGS (2)
  1. TESSALON [Suspect]
     Active Substance: BENZONATATE
     Indication: Cough
     Dosage: UNK
  2. KESIMPTA [Concomitant]
     Active Substance: OFATUMUMAB
     Dosage: UNK

REACTIONS (8)
  - Pneumonia [Unknown]
  - Insomnia [Unknown]
  - Road traffic accident [Unknown]
  - Illness [Unknown]
  - Nasopharyngitis [Unknown]
  - Sinusitis [Unknown]
  - Ear infection [Unknown]
  - Oropharyngeal pain [Unknown]
